FAERS Safety Report 10609616 (Version 1)
Quarter: 2014Q4

REPORT INFORMATION
  Report Type: Report from Study
  Country: BR (occurrence: BR)
  Receive Date: 20141126
  Receipt Date: 20141126
  Transmission Date: 20150529
  Serious: Yes (Other)
  Sender: FDA-Public Use
  Company Number: PHHY2014BR153566

PATIENT
  Sex: Female

DRUGS (1)
  1. SANDOSTATIN LAR DEPOT [Suspect]
     Active Substance: OCTREOTIDE ACETATE
     Indication: PRODUCT USED FOR UNKNOWN INDICATION
     Dosage: UNK
     Route: 065

REACTIONS (7)
  - Labyrinthitis [Unknown]
  - Joint stiffness [Unknown]
  - Memory impairment [Unknown]
  - Vision blurred [Unknown]
  - Sinusitis [Unknown]
  - Dizziness [Unknown]
  - Stress [Unknown]
